FAERS Safety Report 5577442-4 (Version None)
Quarter: 2007Q4

REPORT INFORMATION
  Report Type: 
  Country: None (occurrence: None)
  Receive Date: 20071228
  Receipt Date: 20071219
  Transmission Date: 20080405
  Serious: Yes (Other)
  Sender: FDA-Public Use
  Company Number: JP-PFIZER INC-2007102661

PATIENT
  Sex: Male
  Weight: 72 kg

DRUGS (8)
  1. HALCION [Suspect]
     Indication: INSOMNIA
     Route: 048
  2. LUVOX [Concomitant]
     Dosage: DAILY DOSE:150MG
     Route: 048
     Dates: start: 20070728, end: 20071115
  3. RISPERDAL [Concomitant]
     Dosage: DAILY DOSE:1MG
     Route: 048
     Dates: start: 20070514, end: 20071112
  4. AMOBAN [Concomitant]
     Dosage: DAILY DOSE:10MG
     Route: 048
     Dates: start: 20071013, end: 20071115
  5. RILMAZAFONE [Concomitant]
     Dosage: DAILY DOSE:2MG
     Route: 048
     Dates: start: 20070505, end: 20071115
  6. PAXIL [Concomitant]
     Dosage: DAILY DOSE:20MG
     Route: 048
     Dates: start: 20071115, end: 20071205
  7. ZYPREXA [Concomitant]
     Dosage: DAILY DOSE:2.5MG
     Route: 048
     Dates: start: 20071115
  8. BROTIZOLAM [Concomitant]
     Dosage: DAILY DOSE:.25MG
     Route: 048
     Dates: start: 20071115

REACTIONS (3)
  - BLOOD CHOLESTEROL INCREASED [None]
  - BLOOD TRIGLYCERIDES INCREASED [None]
  - GAMMA-GLUTAMYLTRANSFERASE INCREASED [None]
